FAERS Safety Report 8869165 (Version 3)
Quarter: 2013Q4

REPORT INFORMATION
  Report Type: Spontaneous
  Country: US (occurrence: US)
  Receive Date: 20121029
  Receipt Date: 20131017
  Transmission Date: 20140711
  Serious: Yes (Hospitalization, Disabling, Other)
  Sender: FDA-Public Use
  Company Number: US-009507513-1205USA04386

PATIENT
  Sex: Female
  Weight: 68.27 kg

DRUGS (7)
  1. FOSAMAX [Suspect]
     Indication: OSTEOPOROSIS
     Dosage: 10 MG, QD
     Route: 048
     Dates: start: 20001010, end: 20010319
  2. FOSAMAX [Suspect]
     Indication: OSTEOPENIA
     Dosage: 70 MG, QW
     Route: 048
     Dates: start: 20010320, end: 200201
  3. FOSAMAX [Suspect]
     Dosage: 10 MG, QD
     Route: 048
     Dates: start: 20020107, end: 200201
  4. FOSAMAX [Suspect]
     Dosage: 70 MG, QW
     Dates: start: 20020125, end: 20051010
  5. BONIVA [Suspect]
     Indication: OSTEOPOROSIS
     Dosage: 150 MG, UNK
     Route: 048
     Dates: start: 20051211, end: 20100911
  6. BONIVA [Suspect]
     Indication: OSTEOPENIA
  7. ACTONEL [Suspect]
     Indication: OSTEOPOROSIS
     Dosage: 35 MG, UNK
     Dates: start: 20051010, end: 20051211

REACTIONS (35)
  - Open reduction of fracture [Unknown]
  - Femur fracture [Unknown]
  - Stress fracture [Unknown]
  - Osteoporosis [Unknown]
  - Bone density decreased [Unknown]
  - Coronary angioplasty [Unknown]
  - Ventricle rupture [Recovering/Resolving]
  - Cardiac ablation [Unknown]
  - Ischaemic hepatitis [Recovering/Resolving]
  - Pulmonary embolism [Recovering/Resolving]
  - Encephalopathy [Recovering/Resolving]
  - Respiratory failure [Recovering/Resolving]
  - Hypotension [Recovered/Resolved]
  - Respiratory failure [Recovering/Resolving]
  - Deep vein thrombosis [Recovering/Resolving]
  - Anaemia [Recovering/Resolving]
  - Renal failure acute [Recovered/Resolved]
  - Liver function test abnormal [Recovering/Resolving]
  - Cardiac tamponade [Recovered/Resolved]
  - Cardiac arrest [Recovered/Resolved]
  - Femur fracture [Unknown]
  - Osteoarthritis [Unknown]
  - Radiculitis lumbosacral [Unknown]
  - Hyperhidrosis [Unknown]
  - Hypercholesterolaemia [Unknown]
  - Aortic aneurysm [Unknown]
  - Atrial fibrillation [Not Recovered/Not Resolved]
  - Arteriosclerosis coronary artery [Unknown]
  - Insomnia [Unknown]
  - Treatment noncompliance [Unknown]
  - Atrial tachycardia [Unknown]
  - Osteoarthritis [Unknown]
  - Angina unstable [Unknown]
  - Chest pain [Recovered/Resolved]
  - Vitamin D deficiency [Unknown]
